FAERS Safety Report 5235831-1 (Version None)
Quarter: 2007Q1

REPORT INFORMATION
  Report Type: 
  Country: None (occurrence: None)
  Receive Date: 20070212
  Receipt Date: 20070205
  Transmission Date: 20070707
  Serious: Yes (Disabling)
  Sender: FDA-Public Use
  Company Number: BR-AVENTIS-200711095GDDC

PATIENT
  Age: 65 Year
  Sex: Male
  Weight: 90 kg

DRUGS (8)
  1. LANTUS [Suspect]
     Route: 058
  2. LANTUS [Suspect]
     Route: 058
     Dates: start: 20070125, end: 20070204
  3. LANTUS [Suspect]
     Dates: start: 20070205
  4. TACROLIMUS [Concomitant]
     Dosage: DOSE QUANTITY: 7
     Route: 048
  5. OMEPRAZOLE [Concomitant]
     Dosage: DOSE QUANTITY: 1
     Route: 048
  6. ATENOL [Concomitant]
     Indication: BLOOD PRESSURE
     Dosage: DOSE QUANTITY: 1
     Route: 048
  7. TYLENOL (CAPLET) [Concomitant]
     Route: 048
  8. TYLENOL (CAPLET) [Concomitant]
     Indication: PAIN
     Route: 048

REACTIONS (6)
  - DYSPNOEA [None]
  - HYPERGLYCAEMIA [None]
  - HYPERHIDROSIS [None]
  - HYPERTENSION [None]
  - HYPOGLYCAEMIA [None]
  - TREMOR [None]
